FAERS Safety Report 23724050 (Version 2)
Quarter: 2024Q2

REPORT INFORMATION
  Report Type: Spontaneous
  Country: RU (occurrence: None)
  Receive Date: 20240409
  Receipt Date: 20240422
  Transmission Date: 20240716
  Serious: Yes (Life-Threatening, Other)
  Sender: FDA-Public Use
  Company Number: 2024A083003

PATIENT
  Age: 7 Month
  Sex: Female
  Weight: 8.4 kg

DRUGS (3)
  1. PULMICORT TURBUHALER [Suspect]
     Active Substance: BUDESONIDE
     Indication: Obstructive airways disorder
     Route: 055
     Dates: start: 202402, end: 20240328
  2. PULMICORT TURBUHALER [Suspect]
     Active Substance: BUDESONIDE
     Indication: Obstructive airways disorder
     Route: 055
     Dates: start: 20240330
  3. THEOPHYLLINE ANHYDROUS [Concomitant]
     Active Substance: THEOPHYLLINE ANHYDROUS

REACTIONS (3)
  - General physical health deterioration [Recovered/Resolved]
  - Off label use [Not Recovered/Not Resolved]
  - Drug effective for unapproved indication [Recovering/Resolving]

NARRATIVE: CASE EVENT DATE: 20240330
